FAERS Safety Report 6639260-5 (Version None)
Quarter: 2010Q1

REPORT INFORMATION
  Report Type: 
  Country: None (occurrence: None)
  Receive Date: 20100315
  Receipt Date: 20100304
  Transmission Date: 20100710
  Serious: No
  Sender: FDA-Public Use
  Company Number: 1-21710832

PATIENT
  Age: 53 Year
  Sex: Female
  Weight: 70.3075 kg

DRUGS (2)
  1. FENTANYL-75 [Suspect]
     Indication: BACK PAIN
     Dosage: 75 MCG/HR EVERY 48 HR, TRANSDERMAL
     Route: 062
     Dates: start: 20100216
  2. CYMBALTA [Concomitant]

REACTIONS (1)
  - RESPIRATORY DISTRESS [None]
